FAERS Safety Report 20858396 (Version 1)
Quarter: 2022Q2

REPORT INFORMATION
  Report Type: Spontaneous
  Country: US (occurrence: US)
  Receive Date: 20220521
  Receipt Date: 20220521
  Transmission Date: 20220721
  Serious: No
  Sender: FDA-Public Use
  Company Number: US-BRISTOL-MYERS SQUIBB COMPANY-2022-037877

PATIENT
  Age: 61 Year
  Sex: Female

DRUGS (3)
  1. ORENCIA [Suspect]
     Active Substance: ABATACEPT
     Indication: Rheumatoid arthritis
     Route: 058
     Dates: start: 20170824
  2. ORENCIA [Suspect]
     Active Substance: ABATACEPT
     Indication: Lung neoplasm malignant
  3. ORENCIA [Suspect]
     Active Substance: ABATACEPT
     Indication: Malignant pleural effusion

REACTIONS (2)
  - Adverse event [Unknown]
  - Intentional product use issue [Unknown]
